FAERS Safety Report 4897642-6 (Version None)
Quarter: 2006Q1

REPORT INFORMATION
  Report Type: 
  Country: None (occurrence: None)
  Receive Date: 20060130
  Receipt Date: 20060130
  Transmission Date: 20060701
  Serious: Yes (Other)
  Sender: FDA-Public Use
  Company Number: None

PATIENT
  Age: 85 Year
  Sex: Female
  Weight: 65 kg

DRUGS (14)
  1. DITROPAN [Suspect]
  2. OMEPRAZOLE [Concomitant]
  3. FUROSEMIDE [Concomitant]
  4. LISINOPRIL [Concomitant]
  5. LEVOTHYROXINE SODIUM [Concomitant]
  6. CITALOPRAM HYDROBROMIDE [Concomitant]
  7. PHENYTOIN [Concomitant]
  8. TRAZODONE [Concomitant]
  9. DILTIAZEM HCL [Concomitant]
  10. METOPROLOL TARTRATE [Concomitant]
  11. ASPIRIN [Concomitant]
  12. MILK OF MAGNESIA TAB [Concomitant]
  13. FERROUS SULFATE TAB [Concomitant]
  14. ACETAMINOPHEN [Concomitant]

REACTIONS (2)
  - NAUSEA [None]
  - VOMITING [None]
